FAERS Safety Report 7513227-7 (Version None)
Quarter: 2011Q2

REPORT INFORMATION
  Report Type: 
  Country: None (occurrence: None)
  Receive Date: 20110531
  Receipt Date: 20110524
  Transmission Date: 20111010
  Serious: Yes (Death, Life-Threatening, Hospitalization, Other)
  Sender: FDA-Public Use
  Company Number: DE-ALEXION-A201000888

PATIENT

DRUGS (9)
  1. EXJADE [Concomitant]
     Indication: SERUM FERRITIN INCREASED
     Dosage: 500 MG, TID
     Route: 048
     Dates: start: 20100201
  2. METOPROLOL TARTRATE [Concomitant]
     Indication: HYPERTENSION
     Dosage: 95 MG, UNK
     Route: 048
  3. PANTOZOL                           /01263202/ [Concomitant]
     Indication: PROPHYLAXIS AGAINST GASTROINTESTINAL ULCER
  4. SOLIRIS [Suspect]
     Dosage: 900 MG, UNK
     Route: 042
     Dates: start: 20071001, end: 20100629
  5. PANTOZOL                           /01263202/ [Concomitant]
     Indication: GASTRITIS PROPHYLAXIS
     Dosage: 40 MG, UNK
     Route: 048
     Dates: start: 20100401
  6. PANTOZOL                           /01263202/ [Concomitant]
     Indication: GASTRIC HAEMORRHAGE
  7. PREDNISOLONE [Concomitant]
     Indication: WARM TYPE HAEMOLYTIC ANAEMIA
     Dosage: 7.5 MG, UNK
     Route: 048
     Dates: start: 20090101
  8. RAMIPRIL [Concomitant]
     Indication: CARDIAC FAILURE
     Dosage: 5 MG, UNK
     Route: 048
  9. SOLIRIS [Suspect]
     Indication: PAROXYSMAL NOCTURNAL HAEMOGLOBINURIA
     Dosage: 600 MG, UNK
     Route: 042
     Dates: start: 20070912, end: 20071001

REACTIONS (8)
  - VESICAL FISTULA [None]
  - DIVERTICULITIS [None]
  - PERITONITIS [None]
  - NOSOCOMIAL INFECTION [None]
  - DEATH [None]
  - SUTURE RUPTURE [None]
  - SEPSIS [None]
  - GASTROINTESTINAL PERFORATION [None]
